FAERS Safety Report 25622064 (Version 1)
Quarter: 2025Q3

REPORT INFORMATION
  Report Type: Spontaneous
  Country: US (occurrence: US)
  Receive Date: 20250730
  Receipt Date: 20250730
  Transmission Date: 20251021
  Serious: Yes (Other)
  Sender: SANOFI AVENTIS
  Company Number: US-SA-2025SA215406

PATIENT
  Age: 18 Year
  Sex: Female
  Weight: 73 kg

DRUGS (2)
  1. FABRAZYME [Suspect]
     Active Substance: AGALSIDASE BETA
     Indication: Fabry^s disease
     Dosage: UNK UNK, QOW
     Route: 042
  2. FABRAZYME [Suspect]
     Active Substance: AGALSIDASE BETA
     Dosage: 90 MG, QOW
     Route: 042

REACTIONS (4)
  - Neuropathy peripheral [Unknown]
  - Abdominal pain [Unknown]
  - Therapeutic response shortened [Unknown]
  - Off label use [Unknown]
